FAERS Safety Report 5091096-5 (Version None)
Quarter: 2006Q3

REPORT INFORMATION
  Report Type: 
  Country: None (occurrence: None)
  Receive Date: 20060726
  Receipt Date: 20050804
  Transmission Date: 20061208
  Serious: Yes (Hospitalization)
  Sender: FDA-Public Use
  Company Number: USA-2005-0020948

PATIENT
  Age: 74 Year
  Sex: Female

DRUGS (1)
  1. MS CONTIN [Suspect]
     Indication: DRUG USE FOR UNKNOWN INDICATION
     Dosage: 120 MG, SINGLE, ORAL
     Route: 048

REACTIONS (1)
  - RESPIRATORY DEPRESSION [None]
